FAERS Safety Report 7006168-5 (Version None)
Quarter: 2010Q3

REPORT INFORMATION
  Report Type: 
  Country: None (occurrence: None)
  Receive Date: 20100921
  Receipt Date: 20100920
  Transmission Date: 20110219
  Serious: Yes (Hospitalization, Other)
  Sender: FDA-Public Use
  Company Number: GB-PFIZER INC-2010113162

PATIENT
  Age: 35 Year
  Sex: Female
  Weight: 54 kg

DRUGS (29)
  1. SERTRALINE HYDROCHLORIDE [Suspect]
     Dosage: 100 MG, 2X/DAY
     Dates: start: 20100730
  2. NORETHISTERONE [Suspect]
     Dosage: 350 UG, UNK
     Dates: start: 20091023
  3. LAMICTAL [Suspect]
     Indication: EPILEPSY
     Dosage: 400 MG, 2X/DAY
     Route: 048
     Dates: start: 20040101
  4. LAMICTAL [Suspect]
     Dosage: 200 MG, UNK
     Dates: start: 20100730
  5. LAMICTAL [Suspect]
     Dosage: 100 MG, 2X/DAY
     Dates: start: 20100730
  6. LAMICTAL [Suspect]
     Dosage: 25 MG, 2X/DAY
     Dates: start: 20100702
  7. LAMICTAL [Suspect]
     Dosage: 50 MG, 2X/DAY
     Dates: start: 20100618
  8. PROPRANOLOL [Suspect]
     Dosage: 10 MG, UNK
     Dates: start: 20100730
  9. LANSOPRAZOLE [Suspect]
     Dosage: 30 MG, UNK
     Dates: start: 20100730
  10. DIHYDROCODEINE [Suspect]
     Indication: BACK PAIN
     Dosage: 30 MG 1 TO 2 TDS
     Dates: start: 20090923
  11. ARIPIPRAZOLE [Suspect]
     Dosage: 30 MG, UNK
     Dates: start: 20100730
  12. ARIPIPRAZOLE [Suspect]
     Dosage: 15 MG UNIT DOSE
     Dates: start: 20100702
  13. ARIPIPRAZOLE [Suspect]
     Dosage: 30 MG, UNK
     Dates: start: 20100205
  14. AMOXICILLIN [Concomitant]
     Dosage: 500 MG, 3X/DAY
     Dates: start: 20091130
  15. AMOXICILLIN [Concomitant]
     Dosage: 500 MG, 3X/DAY
     Dates: start: 20100226
  16. AMOXICILLIN [Concomitant]
     Dosage: 500 MG, 3X/DAY
     Dates: start: 20100326
  17. BETAMETHASONE [Concomitant]
     Dosage: 0.1 PERCENT TWICE DAILY TO EACH NOSTRIL
     Route: 045
     Dates: start: 20090722
  18. CHLORAMPHENICOL [Concomitant]
     Dosage: 0.5 PERCENT FOUR TIMES DAILY DOSE
     Route: 047
     Dates: start: 20090923
  19. CLOBAZAM [Concomitant]
     Dosage: UNK
     Dates: start: 20100705
  20. AMPICILLIN SODIUM/SULBACTAM SODIUM [Concomitant]
     Dosage: 500/125 THREE TIMES DAILY DOSE
     Dates: start: 20100517
  21. DICLOFENAC SODIUM [Concomitant]
     Dosage: 50 MG, 3X/DAY
     Dates: start: 20090501
  22. DICLOFENAC SODIUM [Concomitant]
     Dosage: 75 MG, 2X/DAY
  23. FOLIC ACID [Concomitant]
     Dosage: 5 MG, UNK
     Dates: start: 20091221
  24. LACTULOSE [Concomitant]
     Dosage: 3.35G/5ML 5-10ML DAILY DOSE
     Dates: start: 20090722
  25. LIDOCAINE [Concomitant]
     Dosage: 5PERCENT AS REQUIRED MEDICATED PLASTER
     Dates: start: 20100611
  26. MICONAZOLE [Concomitant]
     Dosage: UNK
     Dates: start: 20100604
  27. MICONAZOLE [Concomitant]
     Dosage: UNK
     Dates: start: 20100702
  28. OMEPRAZOLE [Concomitant]
     Dosage: 20MG DAILY DOSE
     Dates: start: 20090506
  29. PROCHLORPERAZINE [Concomitant]
     Indication: NAUSEA
     Dosage: 5 MG, AS NEEDED
     Dates: start: 20100122

REACTIONS (4)
  - CHOLESTASIS OF PREGNANCY [None]
  - CONVULSION [None]
  - LIVE BIRTH [None]
  - PREMATURE LABOUR [None]
